FAERS Safety Report 11853894 (Version 1)
Quarter: 2015Q4

REPORT INFORMATION
  Report Type: Spontaneous
  Country: US (occurrence: US)
  Receive Date: 20151219
  Receipt Date: 20151219
  Transmission Date: 20160305
  Serious: No
  Sender: FDA-Public Use
  Company Number: US-B.I. PHARMACEUTICALS,INC./RIDGEFIELD-2015-BI-68675BP

PATIENT
  Age: 72 Year
  Sex: Female
  Weight: 64 kg

DRUGS (6)
  1. SPIRIVA [Suspect]
     Active Substance: TIOTROPIUM BROMIDE MONOHYDRATE
     Indication: EMPHYSEMA
     Dosage: 5 MCG
     Route: 055
     Dates: start: 20151206
  2. FORADIL [Concomitant]
     Active Substance: FORMOTEROL FUMARATE
     Indication: EMPHYSEMA
     Dosage: 24 MCG
     Route: 055
     Dates: start: 2010
  3. IPRATROPIUM [Concomitant]
     Active Substance: IPRATROPIUM
     Indication: EMPHYSEMA
     Route: 055
     Dates: start: 2007
  4. XOPENEX [Concomitant]
     Active Substance: LEVALBUTEROL HYDROCHLORIDE
     Indication: EMPHYSEMA
     Route: 055
     Dates: start: 2007
  5. PRIMACORT [Concomitant]
     Active Substance: HYDROCORTISONE SODIUM SUCCINATE
     Indication: EMPHYSEMA
     Dosage: 180 MCG
     Route: 055
  6. FORADIL [Concomitant]
     Active Substance: FORMOTEROL FUMARATE
     Dosage: DOSE PER APPLICATION: 12MCG; FORMULATION: CAPSULE
     Route: 055
     Dates: start: 2007

REACTIONS (1)
  - Drug ineffective [Not Recovered/Not Resolved]

NARRATIVE: CASE EVENT DATE: 20151206
